FAERS Safety Report 4851286-0 (Version None)
Quarter: 2005Q4

REPORT INFORMATION
  Report Type: 
  Country: None (occurrence: None)
  Receive Date: 20051208
  Receipt Date: 20051201
  Transmission Date: 20060501
  Serious: Yes (Disabling)
  Sender: FDA-Public Use
  Company Number: HQWYE646818NOV05

PATIENT
  Age: 27 Year
  Sex: Male
  Weight: 71.73 kg

DRUGS (1)
  1. PROTONIX [Suspect]
     Indication: DYSPEPSIA
     Dosage: 40 MG 1X PER 1 DAY, ORAL
     Route: 048
     Dates: start: 20050919, end: 20051001

REACTIONS (8)
  - ACTIVITIES OF DAILY LIVING IMPAIRED [None]
  - ANXIETY [None]
  - CONFUSIONAL STATE [None]
  - DEPRESSION [None]
  - DRUG INEFFECTIVE [None]
  - DYSPNOEA [None]
  - IMPAIRED WORK ABILITY [None]
  - WEIGHT DECREASED [None]
